FAERS Safety Report 19605139 (Version 1)
Quarter: 2021Q3

REPORT INFORMATION
  Report Type: Spontaneous
  Country: CN (occurrence: CN)
  Receive Date: 20210723
  Receipt Date: 20210723
  Transmission Date: 20211014
  Serious: Yes (Other)
  Sender: FDA-Public Use
  Company Number: NVSC2021CN165920

PATIENT
  Age: 34 Year
  Sex: Female
  Weight: 53 kg

DRUGS (4)
  1. DICLOFENAC SODIUM. [Suspect]
     Active Substance: DICLOFENAC SODIUM
     Indication: ANALGESIC THERAPY
     Dosage: 25 MG, QD
     Route: 048
     Dates: start: 20210703, end: 20210703
  2. CIMETIDINE [Concomitant]
     Active Substance: CIMETIDINE
     Indication: GASTROINTESTINAL DISORDER PROPHYLAXIS
     Dosage: 0.2 G, QD
     Route: 048
     Dates: start: 20210703, end: 20210703
  3. COLCHICINE. [Suspect]
     Active Substance: COLCHICINE
     Indication: INFLAMMATION
     Dosage: 0.5 MG, QD
     Route: 048
     Dates: start: 20210703, end: 20210703
  4. PREDNISONE ACETATE [Concomitant]
     Active Substance: PREDNISONE ACETATE
     Indication: ANTIINFLAMMATORY THERAPY
     Dosage: 5 MG, QD
     Route: 048
     Dates: start: 20210703, end: 20210703

REACTIONS (6)
  - Pruritus [Recovering/Resolving]
  - Rash [Recovering/Resolving]
  - Hypoaesthesia [Recovering/Resolving]
  - Anaphylactic shock [Recovering/Resolving]
  - Altered state of consciousness [Recovering/Resolving]
  - Muscle spasms [Recovering/Resolving]

NARRATIVE: CASE EVENT DATE: 20210703
